FAERS Safety Report 24123647 (Version 1)
Quarter: 2024Q3

REPORT INFORMATION
  Report Type: Spontaneous
  Country: US (occurrence: US)
  Receive Date: 20240723
  Receipt Date: 20240723
  Transmission Date: 20241017
  Serious: No
  Sender: OTSUKA
  Company Number: US-OTSUKA-2024_008695

PATIENT
  Age: 50 Year
  Sex: Female

DRUGS (3)
  1. REXULTI [Suspect]
     Active Substance: BREXPIPRAZOLE
     Indication: Product used for unknown indication
     Dosage: 1 MG
     Route: 065
     Dates: start: 202309
  2. REXULTI [Suspect]
     Active Substance: BREXPIPRAZOLE
     Dosage: 2 MG
     Route: 065
     Dates: start: 202402
  3. REXULTI [Suspect]
     Active Substance: BREXPIPRAZOLE
     Dosage: TITRATED DOWN
     Route: 065

REACTIONS (2)
  - Anhedonia [Unknown]
  - Depressed mood [Unknown]

NARRATIVE: CASE EVENT DATE: 20231201
